FAERS Safety Report 20951211 (Version 3)
Quarter: 2022Q2

REPORT INFORMATION
  Report Type: Report from Study
  Country: US (occurrence: US)
  Receive Date: 20220613
  Receipt Date: 20220616
  Transmission Date: 20220721
  Serious: Yes (Other)
  Sender: FDA-Public Use
  Company Number: US-MYLANLABS-2021M1049603

PATIENT
  Age: 37 Year
  Sex: Female
  Weight: 149.2 kg

DRUGS (7)
  1. GLATIRAMER ACETATE [Suspect]
     Active Substance: GLATIRAMER ACETATE
     Indication: Multiple sclerosis
     Dosage: 40 MILLIGRAM, 3XW
     Route: 058
  2. GLATIRAMER ACETATE [Suspect]
     Active Substance: GLATIRAMER ACETATE
     Dosage: 40 MILLIGRAM, 3XW
     Route: 058
  3. GABAPENTIN [Concomitant]
     Active Substance: GABAPENTIN
     Indication: Fibromyalgia
     Dosage: 600 MILLIGRAM, BID
  4. ATORVASTATIN [Concomitant]
     Active Substance: ATORVASTATIN
     Indication: Blood cholesterol increased
     Dosage: 43 MILLIGRAM, BID
  5. CARVEDILOL [Concomitant]
     Active Substance: CARVEDILOL
     Indication: Hypertension
     Dosage: 12.5 MILLIGRAM, BID
  6. VITAMIN B COMPLEX [Concomitant]
     Active Substance: CYANOCOBALAMIN\DEXPANTHENOL\NIACINAMIDE\PYRIDOXINE HYDROCHLORIDE\RIBOFLAVIN 5^-PHOSPHATE SODIUM\THIA
     Dosage: UNK
  7. VITAMIN D [Concomitant]
     Active Substance: VITAMIN D NOS
     Dosage: UNK

REACTIONS (10)
  - Multiple sclerosis [Unknown]
  - Multiple sclerosis relapse [Unknown]
  - Injection site urticaria [Recovered/Resolved]
  - Injection site erythema [Recovered/Resolved]
  - Injection site pruritus [Recovered/Resolved]
  - Injection site pain [Recovered/Resolved]
  - Incorrect dose administered [Unknown]
  - Injection site mass [Unknown]
  - Injection site bruising [Unknown]
  - Injection site extravasation [Unknown]

NARRATIVE: CASE EVENT DATE: 20210701
